FAERS Safety Report 4748304-7 (Version None)
Quarter: 2005Q3

REPORT INFORMATION
  Report Type: 
  Country: None (occurrence: None)
  Receive Date: 20050818
  Receipt Date: 20050803
  Transmission Date: 20060218
  Serious: Yes (Hospitalization)
  Sender: FDA-Public Use
  Company Number: US-MERCK-0508USA00994

PATIENT
  Age: 54 Year
  Sex: Male
  Weight: 98 kg

DRUGS (8)
  1. EMEND [Suspect]
     Indication: PROPHYLAXIS OF NAUSEA AND VOMITING
     Route: 048
     Dates: start: 20050510, end: 20050510
  2. EMEND [Suspect]
     Route: 048
     Dates: start: 20050511, end: 20050512
  3. EMEND [Suspect]
     Route: 048
     Dates: start: 20050607, end: 20050607
  4. EMEND [Suspect]
     Route: 048
     Dates: start: 20050608, end: 20050609
  5. CISPLATIN AND DOCETAXEL [Concomitant]
     Route: 042
     Dates: start: 20050510, end: 20050510
  6. TAXOTERE [Concomitant]
     Route: 042
     Dates: start: 20050509, end: 20050509
  7. LEUCOVORIN CALCIUM [Concomitant]
     Route: 042
     Dates: start: 20050509, end: 20050512
  8. FLUOROURACIL [Concomitant]
     Route: 042
     Dates: start: 20050510, end: 20050512

REACTIONS (8)
  - ASTHENIA [None]
  - DIZZINESS [None]
  - DYSSTASIA [None]
  - FALL [None]
  - FEELING ABNORMAL [None]
  - LOSS OF CONSCIOUSNESS [None]
  - ORTHOSTATIC HYPOTENSION [None]
  - SYNCOPE [None]
